FAERS Safety Report 7320046-3 (Version None)
Quarter: 2011Q1

REPORT INFORMATION
  Report Type: 
  Country: None (occurrence: None)
  Receive Date: 20110228
  Receipt Date: 20110214
  Transmission Date: 20110831
  Serious: Yes (Life-Threatening, Hospitalization)
  Sender: FDA-Public Use
  Company Number: DE-CELGENEUS-062-C5013-10112982

PATIENT
  Age: 74 Year
  Sex: Male

DRUGS (10)
  1. CC-5013 [Suspect]
     Indication: MULTIPLE MYELOMA
     Dosage: 25 MILLIGRAM
     Route: 048
     Dates: start: 20100806
  2. DEXAMETHASONE [Suspect]
     Dosage: 40 MILLIGRAM
     Route: 065
     Dates: start: 20101029
  3. FILGRASTIM [Concomitant]
     Indication: PROPHYLAXIS
     Route: 048
     Dates: start: 20101001
  4. CC-5013 [Suspect]
     Dosage: 25 MILLIGRAM
     Route: 048
     Dates: start: 20101029, end: 20101118
  5. PANTOPRAZOLE [Concomitant]
     Indication: PROPHYLAXIS
     Dosage: 40 MILLIGRAM
     Route: 048
     Dates: start: 20100806
  6. PAMIDRONIC ACID [Concomitant]
     Indication: MULTIPLE MYELOMA
     Route: 051
     Dates: start: 20100806
  7. PAMIDRONIC ACID [Concomitant]
     Indication: OSTEOLYSIS
  8. TAMSULOSIN [Concomitant]
     Indication: BENIGN PROSTATIC HYPERPLASIA
     Dosage: .4 MILLIGRAM
     Route: 048
     Dates: start: 20100901
  9. ACETYLSALICYLIC ACID [Concomitant]
     Indication: THROMBOSIS PROPHYLAXIS
     Dosage: 100 MILLIGRAM
     Route: 048
     Dates: start: 20100806
  10. DEXAMETHASONE [Suspect]
     Indication: MULTIPLE MYELOMA
     Dosage: 40 MILLIGRAM
     Route: 065
     Dates: start: 20100806

REACTIONS (3)
  - PANCYTOPENIA [None]
  - EPIGLOTTITIS [None]
  - STAPHYLOCOCCAL ABSCESS [None]
